FAERS Safety Report 6393197-8 (Version None)
Quarter: 2009Q4

REPORT INFORMATION
  Report Type: 
  Country: None (occurrence: None)
  Receive Date: 20091008
  Receipt Date: 20091005
  Transmission Date: 20100525
  Serious: Yes (Other)
  Sender: FDA-Public Use
  Company Number: DE-B.I. PHARMACEUTICALS,INC./RIDGEFIELD-2009-DE-06354DE

PATIENT
  Sex: Female

DRUGS (4)
  1. ATROVENT [Suspect]
     Indication: PNEUMONIA
  2. BUDIAIR [Concomitant]
     Indication: PNEUMONIA
  3. AMOXICILLIN AND CLAVULANATE POTASSIUM [Concomitant]
     Indication: PNEUMONIA
  4. CIPRI [Concomitant]
     Indication: PNEUMONIA

REACTIONS (4)
  - METASTASES TO EYE [None]
  - VISION BLURRED [None]
  - VISUAL FIELD DEFECT [None]
  - VISUAL IMPAIRMENT [None]
